FAERS Safety Report 9561420 (Version 2)
Quarter: 2013Q4

REPORT INFORMATION
  Report Type: Spontaneous
  Country: US (occurrence: US)
  Receive Date: 20130927
  Receipt Date: 20131115
  Transmission Date: 20140711
  Serious: No
  Sender: FDA-Public Use
  Company Number: US-BIOGENIDEC-2013BI059049

PATIENT
  Age: 59 Year
  Sex: Female

DRUGS (12)
  1. TECFIDERA [Suspect]
     Indication: MULTIPLE SCLEROSIS
     Route: 048
     Dates: start: 20130521, end: 20130527
  2. TECFIDERA [Suspect]
     Indication: MULTIPLE SCLEROSIS
     Route: 048
     Dates: start: 20130528
  3. AMPYRA [Concomitant]
  4. FLAXSEED OIL [Concomitant]
  5. VITAMIN D [Concomitant]
  6. CALCIUM [Concomitant]
  7. DETROL [Concomitant]
  8. LEVOTHYROXINE SODIUM [Concomitant]
  9. TIZANIDINE HCL [Concomitant]
  10. ETODOLAC [Concomitant]
  11. ORPHENADRINE CITRATE CR [Concomitant]
  12. ADVAIR DISKUS [Concomitant]

REACTIONS (7)
  - Stress [Unknown]
  - Mobility decreased [Unknown]
  - Pruritus [Recovered/Resolved]
  - Abdominal discomfort [Recovered/Resolved]
  - Flushing [Recovered/Resolved]
  - Pain [Recovered/Resolved]
  - Urticaria [Recovered/Resolved]
